FAERS Safety Report 8998120 (Version 1)
Quarter: 2013Q1

REPORT INFORMATION
  Report Type: Spontaneous
  Country: GB (occurrence: GB)
  Receive Date: 20130104
  Receipt Date: 20130104
  Transmission Date: 20140127
  Serious: Yes (Other)
  Sender: FDA-Public Use
  Company Number: GB-AMGEN-GBRSP2012083741

PATIENT
  Sex: Female

DRUGS (1)
  1. PROLIA [Suspect]
     Indication: PRODUCT USED FOR UNKNOWN INDICATION

REACTIONS (8)
  - Bone pain [Unknown]
  - Diverticulitis [Unknown]
  - Ear pain [Unknown]
  - Renal impairment [Unknown]
  - Palpitations [Unknown]
  - Abnormal sensation in eye [Unknown]
  - Urinary tract infection [Unknown]
  - Pain in extremity [Unknown]
